FAERS Safety Report 5324703-X (Version None)
Quarter: 2007Q2

REPORT INFORMATION
  Report Type: 
  Country: None (occurrence: None)
  Receive Date: 20070509
  Receipt Date: 20070427
  Transmission Date: 20071010
  Serious: Yes (Disabling, Other)
  Sender: FDA-Public Use
  Company Number: A-CH2007-14847

PATIENT
  Age: 74 Year
  Sex: Male
  Weight: 65 kg

DRUGS (6)
  1. TRACLEER [Suspect]
     Indication: PULMONARY HYPERTENSION
     Dosage: SEE IMAGE
     Route: 048
     Dates: start: 20051024, end: 20051127
  2. TRACLEER [Suspect]
     Indication: PULMONARY HYPERTENSION
     Dosage: SEE IMAGE
     Route: 048
     Dates: start: 20051128
  3. DILTIAZEM HYDROCHLORIDE [Concomitant]
  4. NITRODERM [Concomitant]
  5. ACENOCOUMAROL (ACENOCOUMAROL) [Concomitant]
  6. VIAGRA [Concomitant]

REACTIONS (2)
  - ANOREXIA [None]
  - DYSGEUSIA [None]
